FAERS Safety Report 6427581-0 (Version None)
Quarter: 2009Q4

REPORT INFORMATION
  Report Type: 
  Country: None (occurrence: None)
  Receive Date: 20091027
  Receipt Date: 20091013
  Transmission Date: 20100525
  Serious: Yes (Death, Other)
  Sender: FDA-Public Use
  Company Number: 2007314449

PATIENT
  Age: 15 Month
  Sex: Female

DRUGS (1)
  1. PSEUDOEPHEDRINE HCL [Suspect]

REACTIONS (3)
  - DEHYDRATION [None]
  - MYOCARDITIS [None]
  - VOMITING [None]
